FAERS Safety Report 14202819 (Version 1)
Quarter: 2017Q4

REPORT INFORMATION
  Report Type: Spontaneous
  Country: US (occurrence: US)
  Receive Date: 20171119
  Receipt Date: 20171119
  Transmission Date: 20180321
  Serious: No
  Sender: FDA-Public Use
  Company Number: US-DUSA PHARMACEUTICALS, INC.-2034591

PATIENT
  Age: 65 Year
  Sex: Male

DRUGS (18)
  1. LEVULAN KERASTICK [Suspect]
     Active Substance: AMINOLEVULINIC ACID HYDROCHLORIDE
     Indication: ACTINIC KERATOSIS
     Route: 061
     Dates: start: 20170223, end: 20170223
  2. PANTOPRAZOLE SODIUM. [Concomitant]
     Active Substance: PANTOPRAZOLE SODIUM
  3. RHINOCORT [Concomitant]
     Active Substance: BUDESONIDE
  4. ENBREL [Concomitant]
     Active Substance: ETANERCEPT
  5. MULTIVITAMIN [Concomitant]
     Active Substance: VITAMINS
  6. VITAMIN B1 [Concomitant]
     Active Substance: THIAMINE HYDROCHLORIDE
  7. CALCIUM CITRATE PLUS D [Concomitant]
  8. LEFLUMANIDE [Concomitant]
  9. SULFASALAZINE. [Concomitant]
     Active Substance: SULFASALAZINE
  10. ALBUTERAL [Concomitant]
     Active Substance: ALBUTEROL
  11. AMLODOPINE [Concomitant]
     Active Substance: AMLODIPINE BESYLATE
  12. VITAMIN B6 [Concomitant]
     Active Substance: PYRIDOXINE HYDROCHLORIDE
  13. PREDNISONE. [Concomitant]
     Active Substance: PREDNISONE
  14. TYLENOL [Concomitant]
     Active Substance: ACETAMINOPHEN
  15. LISINOPRIL. [Concomitant]
     Active Substance: LISINOPRIL
  16. ACYCLOVIR. [Concomitant]
     Active Substance: ACYCLOVIR
  17. TRIAMTERENE HTZ [Concomitant]
  18. ASPIRIN 81 MG [Concomitant]
     Active Substance: ASPIRIN

REACTIONS (1)
  - Eye burns [Recovered/Resolved]

NARRATIVE: CASE EVENT DATE: 20170223
